FAERS Safety Report 10557559 (Version 2)
Quarter: 2014Q4

REPORT INFORMATION
  Report Type: Spontaneous
  Country: US (occurrence: US)
  Receive Date: 20141031
  Receipt Date: 20141121
  Transmission Date: 20150529
  Serious: Yes (Hospitalization)
  Sender: FDA-Public Use
  Company Number: US-PFIZER INC-2014298319

PATIENT
  Age: 42 Year
  Sex: Male

DRUGS (1)
  1. CHANTIX [Suspect]
     Active Substance: VARENICLINE TARTRATE
     Indication: SMOKING CESSATION THERAPY
     Dosage: UNK, 1X/DAY
     Dates: start: 20120919, end: 2012

REACTIONS (4)
  - Emotional poverty [Not Recovered/Not Resolved]
  - Depression [Not Recovered/Not Resolved]
  - Frustration [Not Recovered/Not Resolved]
  - Anxiety [Not Recovered/Not Resolved]
